FAERS Safety Report 8760178 (Version 1)
Quarter: 2012Q4

REPORT INFORMATION
  Report Type: 
  Country: US (occurrence: US)
  Receive Date: 20120829
  Receipt Date: 20120829
  Transmission Date: 20130627
  Serious: Yes (Other)
  Sender: FDA-Public Use
  Company Number: US-ROCHE-1092905

PATIENT
  Sex: Male

DRUGS (10)
  1. XOLAIR [Suspect]
     Indication: ASTHMA
  2. XOLAIR [Suspect]
     Indication: RHINITIS ALLERGIC
  3. ADVAIR [Concomitant]
     Dosage: 500/50
  4. PREDNISONE [Concomitant]
  5. ALLOPURINOL [Concomitant]
  6. IBUPROFEN [Concomitant]
  7. SINGULAIR [Concomitant]
  8. ZYRTEC [Concomitant]
  9. ALBUTEROL INHALER [Concomitant]
  10. ALBUTEROL NEBULIZER [Concomitant]

REACTIONS (1)
  - Malaise [Unknown]
